FAERS Safety Report 10787104 (Version 1)
Quarter: 2015Q1

REPORT INFORMATION
  Report Type: Spontaneous
  Country: US (occurrence: US)
  Receive Date: 20150211
  Receipt Date: 20150211
  Transmission Date: 20150721
  Serious: No
  Sender: FDA-Public Use
  Company Number: US-GLAXOSMITHKLINE-US2014040388

PATIENT
  Age: 58 Year
  Sex: Male

DRUGS (4)
  1. VOTRIENT [Suspect]
     Active Substance: PAZOPANIB HYDROCHLORIDE
     Indication: SOFT TISSUE SARCOMA
     Dosage: 800 MG, QD
     Route: 048
     Dates: start: 20141201
  2. ASPIRIN. [Concomitant]
     Active Substance: ASPIRIN
  3. INSULIN [Concomitant]
     Active Substance: INSULIN NOS
  4. IRON [Concomitant]
     Active Substance: IRON

REACTIONS (3)
  - Abdominal pain upper [Recovering/Resolving]
  - Cough [Recovering/Resolving]
  - Retching [Recovering/Resolving]

NARRATIVE: CASE EVENT DATE: 20141201
